FAERS Safety Report 6499093-X (Version None)
Quarter: 2009Q4

REPORT INFORMATION
  Report Type: 
  Country: None (occurrence: None)
  Receive Date: 20091215
  Receipt Date: 20091201
  Transmission Date: 20100525
  Serious: Yes (Hospitalization)
  Sender: FDA-Public Use
  Company Number: US-MYLANLABS-2009S1020739

PATIENT
  Sex: Male

DRUGS (4)
  1. LAMICTAL [Suspect]
  2. LAMOTRIGINE [Suspect]
  3. CLOBAZAM [Concomitant]
  4. PREGABALIN [Concomitant]

REACTIONS (4)
  - ADVERSE DRUG REACTION [None]
  - ADVERSE EVENT [None]
  - MOOD SWINGS [None]
  - SURGERY [None]
